FAERS Safety Report 25645871 (Version 1)
Quarter: 2025Q3

REPORT INFORMATION
  Report Type: Spontaneous
  Country: US (occurrence: US)
  Receive Date: 20250805
  Receipt Date: 20250805
  Transmission Date: 20251020
  Serious: No
  Sender: BAUSCH AND LOMB
  Company Number: US-BAUSCHBL-2025BNL013511

PATIENT
  Age: 55 Year
  Sex: Female

DRUGS (2)
  1. LUMIFY [Suspect]
     Active Substance: BRIMONIDINE TARTRATE
     Indication: Product used for unknown indication
     Route: 047
     Dates: start: 2019
  2. LUMIFY [Suspect]
     Active Substance: BRIMONIDINE TARTRATE

REACTIONS (5)
  - Sinus disorder [Unknown]
  - Rhinorrhoea [Unknown]
  - Eye irritation [Unknown]
  - Product quality issue [Unknown]
  - Inappropriate schedule of product administration [Unknown]
